FAERS Safety Report 8951116 (Version 3)
Quarter: 2013Q1

REPORT INFORMATION
  Report Type: Spontaneous
  Country: US (occurrence: None)
  Receive Date: 20121130
  Receipt Date: 20130117
  Transmission Date: 20140127
  Serious: Yes (Death, Hospitalization, Other)
  Sender: FDA-Public Use
  Company Number: AMAG201203142

PATIENT
  Age: 56 Year
  Sex: Female
  Weight: 93.4 kg

DRUGS (4)
  1. FERAHEME [Suspect]
     Indication: IRON DEFICIENCY ANAEMIA
     Route: 042
     Dates: start: 20121120, end: 20121120
  2. OMEGA-3 FATTY ACIDS (OMEGA-3 FATTY ACIDS) [Concomitant]
  3. AMLODIPINE BESYLATE [Concomitant]
  4. COREG CR (CARVEDILOL) [Concomitant]

REACTIONS (12)
  - Cardiac arrest [None]
  - Loss of consciousness [None]
  - Unresponsive to stimuli [None]
  - Status epilepticus [None]
  - Wheezing [None]
  - Anaphylactic shock [None]
  - Malaise [None]
  - Anxiety [None]
  - Lactic acidosis [None]
  - Leukocytosis [None]
  - Renal failure acute [None]
  - Metabolic acidosis [None]
